FAERS Safety Report 7955704 (Version 5)
Quarter: 2015Q2

REPORT INFORMATION
  Report Type: Spontaneous
  Country: US (occurrence: US)
  Receive Date: 20110523
  Receipt Date: 20150508
  Transmission Date: 20150821
  Serious: Yes (Other)
  Sender: FDA-Public Use
  Company Number: US-ASTRAZENECA-2009UW06379

PATIENT
  Age: 912 Month
  Sex: Female
  Weight: 45.4 kg

DRUGS (18)
  1. IRON [Concomitant]
     Active Substance: IRON
     Indication: ANAEMIA
     Route: 048
     Dates: start: 201504
  2. VITAMIN B12 [Concomitant]
     Active Substance: CYANOCOBALAMIN
     Indication: FATIGUE
     Route: 048
     Dates: start: 2014
  3. GYMNEMA SYLVESTRE [Concomitant]
     Indication: BLOOD GLUCOSE ABNORMAL
     Route: 048
  4. CHROMIUM POLYMICOTEINATE [Concomitant]
     Route: 048
  5. TOPROL XL [Suspect]
     Active Substance: METOPROLOL SUCCINATE
     Indication: HYPERTENSION
     Route: 048
  6. ASPIRIN. [Concomitant]
     Active Substance: ASPIRIN
  7. SUPPLEMENTS [Concomitant]
     Active Substance: UNSPECIFIED INGREDIENT
  8. FIUROCET [Concomitant]
  9. ATIVAN [Concomitant]
     Active Substance: LORAZEPAM
     Dosage: AS REQUIRED
  10. TOPROL XL [Suspect]
     Active Substance: METOPROLOL SUCCINATE
     Indication: HYPERTENSION
     Route: 048
  11. TOPROL XL [Suspect]
     Active Substance: METOPROLOL SUCCINATE
     Indication: HYPERTENSION
     Route: 048
  12. FISH OIL WITH KREEL [Concomitant]
     Indication: GENERAL PHYSICAL CONDITION
     Route: 048
  13. TOPROL XL [Suspect]
     Active Substance: METOPROLOL SUCCINATE
     Indication: HYPERTENSION
     Route: 048
  14. NEXIUM [Suspect]
     Active Substance: ESOMEPRAZOLE MAGNESIUM
     Route: 048
  15. TOPROL XL [Suspect]
     Active Substance: METOPROLOL SUCCINATE
     Indication: HYPERTENSION
     Route: 048
  16. RESTORIL [Concomitant]
     Active Substance: TEMAZEPAM
  17. PERCOCET [Concomitant]
     Active Substance: ACETAMINOPHEN\OXYCODONE HYDROCHLORIDE
     Indication: PAIN
  18. VITAMIN D3 [Concomitant]
     Active Substance: CHOLECALCIFEROL
     Indication: PHOTOPHOBIA
     Route: 048

REACTIONS (16)
  - Hypertension [Not Recovered/Not Resolved]
  - Osteoporosis [Unknown]
  - Palpitations [Unknown]
  - Drug ineffective [Unknown]
  - Tachycardia [Unknown]
  - Fatigue [Not Recovered/Not Resolved]
  - Hepatitis D [Unknown]
  - Pain in extremity [Unknown]
  - Neck pain [Unknown]
  - Body height decreased [Not Recovered/Not Resolved]
  - Pain [Unknown]
  - Anxiety [Unknown]
  - Hypothyroidism [Unknown]
  - Headache [Unknown]
  - Nightmare [Unknown]
  - Alopecia [Not Recovered/Not Resolved]

NARRATIVE: CASE EVENT DATE: 200903
